FAERS Safety Report 23045001 (Version 2)
Quarter: 2024Q2

REPORT INFORMATION
  Report Type: Spontaneous
  Country: CA (occurrence: CA)
  Receive Date: 20231009
  Receipt Date: 20240408
  Transmission Date: 20240716
  Serious: Yes (Life-Threatening)
  Sender: FDA-Public Use
  Company Number: CA-PFIZER INC-202300312717

PATIENT
  Age: 82 Year
  Sex: Female

DRUGS (1)
  1. LIDOCAINE HYDROCHLORIDE [Suspect]
     Active Substance: LIDOCAINE HYDROCHLORIDE

REACTIONS (7)
  - Syncope [Unknown]
  - Depressed level of consciousness [Unknown]
  - Asterixis [Unknown]
  - Dysarthria [Unknown]
  - Eye movement disorder [Unknown]
  - Feeling abnormal [Unknown]
  - Hypoaesthesia oral [Unknown]
